FAERS Safety Report 4977398-9 (Version None)
Quarter: 2006Q2

REPORT INFORMATION
  Report Type: 
  Country: None (occurrence: None)
  Receive Date: 20060413
  Receipt Date: 20060404
  Transmission Date: 20061013
  Serious: Yes (Other)
  Sender: FDA-Public Use
  Company Number: 6021738F

PATIENT
  Age: 65 Year
  Sex: Male

DRUGS (4)
  1. NIASPAN [Suspect]
     Indication: HYPERLIPIDAEMIA
     Dosage: 500 MG BID PO
     Route: 048
     Dates: start: 20060202, end: 20060202
  2. COAPROVEL [Concomitant]
  3. REPAGLINIDE [Concomitant]
  4. INSULIN [Concomitant]

REACTIONS (2)
  - DERMATITIS BULLOUS [None]
  - SCAR [None]
